FAERS Safety Report 10253850 (Version 3)
Quarter: 2014Q3

REPORT INFORMATION
  Report Type: Spontaneous
  Country: AT (occurrence: AT)
  Receive Date: 20140623
  Receipt Date: 20140703
  Transmission Date: 20150326
  Serious: Yes (Hospitalization)
  Sender: FDA-Public Use
  Company Number: AT-US-EMD SERONO, INC.-7299860

PATIENT
  Age: 37 Year
  Sex: Male

DRUGS (4)
  1. EFECTIN /01233801/ [Suspect]
     Active Substance: VENLAFAXINE HYDROCHLORIDE
     Indication: IMMUNOSUPPRESSION
  2. NOVALGIN [Concomitant]
     Active Substance: METAMIZOLE SODIUM
     Indication: TENSION HEADACHE
     Dosage: 20 DROPS
     Dates: start: 20140221
  3. SERACTIL [Concomitant]
     Active Substance: DEXIBUPROFEN
     Indication: TENSION HEADACHE
     Dates: start: 20140221
  4. REBIF [Suspect]
     Active Substance: INTERFERON BETA-1A
     Indication: RELAPSING-REMITTING MULTIPLE SCLEROSIS
     Dates: start: 201108, end: 20140603

REACTIONS (4)
  - Posterior reversible encephalopathy syndrome [Recovered/Resolved]
  - Epilepsy [None]
  - Hypertension [Unknown]
  - Blindness [None]

NARRATIVE: CASE EVENT DATE: 20140602
